FAERS Safety Report 18113477 (Version 1)
Quarter: 2020Q3

REPORT INFORMATION
  Report Type: Spontaneous
  Country: US (occurrence: US)
  Receive Date: 20200805
  Receipt Date: 20200805
  Transmission Date: 20201103
  Serious: Yes (Hospitalization)
  Sender: FDA-Public Use
  Company Number: None

PATIENT
  Age: 61 Year
  Sex: Male

DRUGS (10)
  1. CINACALCET. [Suspect]
     Active Substance: CINACALCET
     Indication: PRODUCT USED FOR UNKNOWN INDICATION
     Route: 048
     Dates: start: 20191223
  2. OXYCODONE [Concomitant]
     Active Substance: OXYCODONE
  3. GABAPENTIN. [Concomitant]
     Active Substance: GABAPENTIN
  4. LEVEMIR [Concomitant]
     Active Substance: INSULIN DETEMIR
  5. HYDROCODONE [Concomitant]
     Active Substance: HYDROCODONE
  6. NABUMETONE. [Concomitant]
     Active Substance: NABUMETONE
  7. PIOGLITAZONE. [Concomitant]
     Active Substance: PIOGLITAZONE
  8. METHOCARBAM [Concomitant]
     Active Substance: METHOCARBAMOL
  9. ESCITALOPRAM [Concomitant]
     Active Substance: ESCITALOPRAM OXALATE
  10. MEGESTROL AC SUS [Concomitant]

REACTIONS (2)
  - Therapy interrupted [None]
  - Leg amputation [None]

NARRATIVE: CASE EVENT DATE: 20200710
